FAERS Safety Report 8111911-8 (Version None)
Quarter: 2012Q1

REPORT INFORMATION
  Report Type: 
  Country: None (occurrence: None)
  Receive Date: 20120203
  Receipt Date: 20110316
  Transmission Date: 20120608
  Serious: No
  Sender: FDA-Public Use
  Company Number: US-GLAXOSMITHKLINE-A0918521A

PATIENT
  Age: 56 Year
  Sex: Female

DRUGS (5)
  1. METFORMIN HCL [Concomitant]
  2. VITAMIN D [Concomitant]
  3. ARIXTRA [Suspect]
     Indication: PULMONARY EMBOLISM
     Dosage: 2.5MG PER DAY
     Route: 058
     Dates: start: 20101001
  4. COZAAR [Concomitant]
  5. SYNTHROID [Concomitant]

REACTIONS (4)
  - PRESYNCOPE [None]
  - NAUSEA [None]
  - INJECTION SITE HAEMORRHAGE [None]
  - PRODUCT QUALITY ISSUE [None]
